FAERS Safety Report 9348132 (Version 3)
Quarter: 2014Q1

REPORT INFORMATION
  Report Type: Spontaneous
  Country: CA (occurrence: CA)
  Receive Date: 20130614
  Receipt Date: 20140127
  Transmission Date: 20141002
  Serious: Yes (Other)
  Sender: FDA-Public Use
  Company Number: CA-ROCHE-1235380

PATIENT
  Age: 25 Year
  Sex: Male

DRUGS (7)
  1. XOLAIR [Suspect]
     Indication: ASTHMA
     Route: 058
     Dates: start: 20130510
  2. XOLAIR [Suspect]
     Route: 058
     Dates: start: 20130605
  3. XOLAIR [Suspect]
     Route: 058
     Dates: start: 20131002
  4. PREDNISONE [Concomitant]
  5. SYMBICORT [Concomitant]
  6. BRICANYL [Concomitant]
  7. OMNARIS [Concomitant]

REACTIONS (26)
  - Asthenopia [Recovering/Resolving]
  - Chills [Recovering/Resolving]
  - Oral pruritus [Recovering/Resolving]
  - Dyspnoea [Recovering/Resolving]
  - Feeling drunk [Recovering/Resolving]
  - Dry mouth [Recovering/Resolving]
  - Nausea [Recovering/Resolving]
  - Sensation of heaviness [Unknown]
  - Dizziness [Recovering/Resolving]
  - Fatigue [Recovering/Resolving]
  - Headache [Recovered/Resolved]
  - Hypoaesthesia oral [Recovered/Resolved]
  - Pharyngeal hypoaesthesia [Recovered/Resolved]
  - Paraesthesia oral [Recovered/Resolved]
  - Lip swelling [Recovered/Resolved]
  - Swollen tongue [Recovered/Resolved]
  - Pharyngeal oedema [Recovered/Resolved]
  - Pain in extremity [Recovered/Resolved]
  - Nasal discharge discolouration [Unknown]
  - Ear infection [Unknown]
  - Anaemia [Unknown]
  - Otorrhoea [Unknown]
  - Dyspepsia [Unknown]
  - Nasal oedema [Unknown]
  - Sinusitis [Unknown]
  - Immunoglobulins abnormal [Not Recovered/Not Resolved]
